FAERS Safety Report 7471122-6 (Version None)
Quarter: 2011Q2

REPORT INFORMATION
  Report Type: 
  Country: None (occurrence: None)
  Receive Date: 20110510
  Receipt Date: 20110422
  Transmission Date: 20111010
  Serious: No
  Sender: FDA-Public Use
  Company Number: US-B.I. PHARMACEUTICALS,INC./RIDGEFIELD-2011-BP-05036BP

PATIENT
  Sex: Female

DRUGS (8)
  1. FEXOFENADINE [Concomitant]
     Dosage: 180 MG
  2. SIMVASTATIN [Concomitant]
     Dosage: 40 MG
  3. LEVOTHYROXINE SODIUM [Concomitant]
     Dosage: 150 MG
  4. FLOVENT [Concomitant]
  5. ZETIA [Concomitant]
     Dosage: 10 MG
  6. FUROSEMIDE [Concomitant]
  7. ATENOLOL [Concomitant]
     Dosage: 50 MG
  8. PRADAXA [Suspect]

REACTIONS (1)
  - ABDOMINAL DISTENSION [None]
